FAERS Safety Report 8448366-X (Version None)
Quarter: 2012Q2

REPORT INFORMATION
  Report Type: 
  Country: None (occurrence: None)
  Receive Date: 20120619
  Receipt Date: 20120607
  Transmission Date: 20120825
  Serious: No
  Sender: FDA-Public Use
  Company Number: US-ASTRAZENECA-2012SE38443

PATIENT
  Age: 48 Year
  Sex: Male
  Weight: 94.8 kg

DRUGS (2)
  1. CRESTOR [Suspect]
     Route: 048
  2. CRESTOR [Suspect]
     Route: 048
     Dates: start: 20070701

REACTIONS (18)
  - DISTURBANCE IN ATTENTION [None]
  - FATIGUE [None]
  - ANXIETY [None]
  - PALPITATIONS [None]
  - MYALGIA [None]
  - INTENTIONAL DRUG MISUSE [None]
  - TUNNEL VISION [None]
  - DRUG DOSE OMISSION [None]
  - VISION BLURRED [None]
  - RESPIRATORY DISORDER [None]
  - GASTRIC DISORDER [None]
  - FEELING ABNORMAL [None]
  - BURNING SENSATION [None]
  - EXTRASYSTOLES [None]
  - MIGRAINE [None]
  - CHEST DISCOMFORT [None]
  - PAIN [None]
  - HEADACHE [None]
